FAERS Safety Report 7625687-1 (Version None)
Quarter: 2011Q3

REPORT INFORMATION
  Report Type: 
  Country: None (occurrence: None)
  Receive Date: 20110721
  Receipt Date: 20110719
  Transmission Date: 20111222
  Serious: Yes (Other)
  Sender: FDA-Public Use
  Company Number: US-PFIZER INC-2011164438

PATIENT
  Sex: Female
  Weight: 84 kg

DRUGS (4)
  1. LYRICA [Suspect]
     Dosage: 200 MG, 2X/DAY
     Route: 048
     Dates: start: 20080101
  2. LYRICA [Suspect]
     Indication: PARTIAL SEIZURES
     Dosage: 100 MG,DAILY
     Route: 048
     Dates: start: 20070101
  3. LYRICA [Suspect]
     Dosage: 400 MG, 2X/DAY
     Route: 048
     Dates: start: 20090601
  4. LYRICA [Suspect]
     Dosage: 200 MG, 2X/DAY

REACTIONS (1)
  - PARTIAL SEIZURES [None]
